FAERS Safety Report 21644944 (Version 1)
Quarter: 2022Q4

REPORT INFORMATION
  Report Type: Report from Study
  Country: US (occurrence: US)
  Receive Date: 20221125
  Receipt Date: 20221125
  Transmission Date: 20230113
  Serious: No
  Sender: FDA-Public Use
  Company Number: US-ABBVIE-4166971

PATIENT

DRUGS (5)
  1. HUMIRA [Suspect]
     Active Substance: ADALIMUMAB
     Indication: Rheumatoid arthritis
     Route: 058
  2. PREDNISONE [Concomitant]
     Active Substance: PREDNISONE
     Indication: Product used for unknown indication
  3. Moderna [Concomitant]
     Indication: COVID-19 immunisation
     Dosage: ONE, ONE, ONCE 1ST DOSE
     Route: 030
  4. Moderna [Concomitant]
     Indication: COVID-19 immunisation
     Dosage: ONE, ONE, ONCE 2ND DOSE
     Route: 030
  5. Moderna [Concomitant]
     Indication: COVID-19 immunisation
     Dosage: ONE, ONE, ONCE BOOSTER DOSE
     Route: 030

REACTIONS (1)
  - Inappropriate schedule of product administration [Recovering/Resolving]
